FAERS Safety Report 8767864 (Version 1)
Quarter: 2012Q4

REPORT INFORMATION
  Report Type: 
  Country: FR (occurrence: FR)
  Receive Date: 20120904
  Receipt Date: 20120904
  Transmission Date: 20130627
  Serious: Yes (Death)
  Sender: FDA-Public Use
  Company Number: FR-009507513-1208FRA011775

PATIENT

DRUGS (4)
  1. CANCIDAS [Suspect]
     Indication: CANDIDA SEPSIS
     Dosage: 50 mg, qd
     Route: 042
     Dates: start: 20120803, end: 20120817
  2. TAZOCILLINE [Suspect]
     Indication: FEBRILE BONE MARROW APLASIA
     Dosage: 4 g, qid
     Route: 042
     Dates: start: 20120721, end: 20120730
  3. TRIFLUCAN [Suspect]
     Indication: CANDIDA SEPSIS
     Dosage: 1 DF, qd
     Route: 048
     Dates: start: 20120729, end: 20120803
  4. TRIFLUCAN [Suspect]
     Dosage: 1 DF, qd
     Route: 048
     Dates: start: 20120817, end: 20120820

REACTIONS (3)
  - Hepatitis fulminant [Fatal]
  - Hypoglycaemia [None]
  - Renal failure acute [None]
